FAERS Safety Report 13797272 (Version 4)
Quarter: 2018Q1

REPORT INFORMATION
  Report Type: Spontaneous
  Country: US (occurrence: US)
  Receive Date: 20170727
  Receipt Date: 20180326
  Transmission Date: 20180508
  Serious: No
  Sender: FDA-Public Use
  Company Number: US-009507513-1707USA004990

PATIENT
  Sex: Female

DRUGS (6)
  1. SEROQUEL [Concomitant]
     Active Substance: QUETIAPINE FUMARATE
  2. VITAMINS (UNSPECIFIED) [Concomitant]
     Active Substance: VITAMINS
  3. AMLODIPINE BESYLATE. [Concomitant]
     Active Substance: AMLODIPINE BESYLATE
  4. ZEPATIER [Suspect]
     Active Substance: ELBASVIR\GRAZOPREVIR
     Indication: HEPATITIS C
     Dosage: ONE 50/100MG TABLET BY MOUTH EVERY DAY
     Route: 048
     Dates: start: 20170619
  5. ZEPATIER [Suspect]
     Active Substance: ELBASVIR\GRAZOPREVIR
     Dosage: ONE 50/100MG TABLET BY MOUTH EVERY DAY
     Route: 048
     Dates: start: 201706
  6. AMBIEN [Concomitant]
     Active Substance: ZOLPIDEM TARTRATE

REACTIONS (2)
  - Drug dose omission [Unknown]
  - Insomnia [Unknown]

NARRATIVE: CASE EVENT DATE: 2017
